FAERS Safety Report 16146461 (Version 1)
Quarter: 2019Q2

REPORT INFORMATION
  Report Type: Spontaneous
  Country: FR (occurrence: FR)
  Receive Date: 20190402
  Receipt Date: 20190402
  Transmission Date: 20190711
  Serious: Yes (Hospitalization)
  Sender: FDA-Public Use
  Company Number: FR-SUN PHARMACEUTICAL INDUSTRIES LTD-2019RR-203554

PATIENT
  Age: 82 Year
  Sex: Female

DRUGS (13)
  1. VITAMINE B12 [Concomitant]
     Active Substance: CYANOCOBALAMIN
     Indication: CROHN^S DISEASE
     Dosage: 1 DOSAGE FORM, WEEKLY
     Route: 048
  2. SECTRAL 400 MG, COMPRIME PELLICULE [Concomitant]
     Indication: HYPERTENSION
     Dosage: 1 DOSAGE FORM, DAILY
     Route: 048
  3. BESILATE D^AMLODIPINE [Concomitant]
     Indication: HYPERTENSION
     Dosage: 5 MILLIGRAM, DAILY
     Route: 048
  4. TRAMADOL. [Suspect]
     Active Substance: TRAMADOL
     Indication: ANALGESIC INTERVENTION SUPPORTIVE THERAPY
     Dosage: 150 MILLIGRAM, DAILY
     Route: 048
     Dates: start: 20190123, end: 20190210
  5. LANSOPRAZOLE. [Concomitant]
     Active Substance: LANSOPRAZOLE
     Indication: GASTROOESOPHAGEAL REFLUX DISEASE
     Dosage: 15 MILLIGRAM, DAILY
     Route: 048
     Dates: start: 20190123, end: 20190207
  6. PENTASA [Concomitant]
     Active Substance: MESALAMINE
     Indication: CROHN^S DISEASE
     Dosage: 3 GRAM, DAILY
     Route: 048
  7. EUTHYROX 200 MICROGRAMMES COMPRIMES [Concomitant]
     Indication: HYPOTHYROIDISM
     Dosage: 1 DOSAGE FORM, DAILY
     Route: 048
  8. COZAAR [Concomitant]
     Active Substance: LOSARTAN POTASSIUM
     Indication: HYPERTENSION
     Dosage: 1 DOSAGE FORM, DAILY
     Route: 048
  9. OROCAL VITAMINE D3 500 MG/200 U.I., COMPRIME A SUCER [Concomitant]
     Active Substance: CALCIUM CARBONATE\CHOLECALCIFEROL
     Indication: OSTEOPOROSIS
     Dosage: 2 DOSAGE FORM, DAILY
     Route: 048
  10. PREDNISOLONE. [Concomitant]
     Active Substance: PREDNISOLONE
     Indication: ANTIINFLAMMATORY THERAPY
     Dosage: 2 LE MATIN PENDANT 7 JOURS PUIS 1 PAR JOUR PENDANT 2 JOURS PUIS 1/2 PAR JOUR PENDANT 2 JOURS ()
     Route: 048
     Dates: start: 20190123, end: 20190203
  11. TARDYFERON 80 MG, COMPRIME ENROBE [Concomitant]
     Active Substance: FERROUS SULFATE
     Indication: IRON DEFICIENCY ANAEMIA
     Dosage: 1 DOSAGE FORM, DAILY
     Route: 048
  12. ENTOCORT 3 MG, MICROGRANULES GASTRORESISTANTS EN GELULE [Concomitant]
     Indication: CROHN^S DISEASE
     Dosage: 2 DOSAGE FORM, DAILY
     Route: 048
  13. DAFALGAN [Concomitant]
     Active Substance: ACETAMINOPHEN
     Indication: ANALGESIC INTERVENTION SUPPORTIVE THERAPY
     Dosage: 3 DOSAGE FORM, DAILY
     Route: 048

REACTIONS (3)
  - Fall [Recovered/Resolved]
  - Vertigo [Recovered/Resolved]
  - Balance disorder [Recovered/Resolved]

NARRATIVE: CASE EVENT DATE: 20190209
